FAERS Safety Report 4590332-9 (Version None)
Quarter: 2005Q1

REPORT INFORMATION
  Report Type: 
  Country: None (occurrence: None)
  Receive Date: 20050218
  Receipt Date: 20050218
  Transmission Date: 20050727
  Serious: Yes (Life-Threatening, Hospitalization)
  Sender: FDA-Public Use
  Company Number: None

PATIENT
  Age: 11 Year
  Sex: Male
  Weight: 45 kg

DRUGS (1)
  1. HEPARIN [Suspect]

REACTIONS (3)
  - BLOOD CULTURE POSITIVE [None]
  - HYPOTENSION [None]
  - PYREXIA [None]
